FAERS Safety Report 4729092-7 (Version None)
Quarter: 2005Q3

REPORT INFORMATION
  Report Type: 
  Country: None (occurrence: None)
  Receive Date: 20050729
  Receipt Date: 20050404
  Transmission Date: 20060218
  Serious: Yes (Other)
  Sender: FDA-Public Use
  Company Number: US-GLAXOSMITHKLINE-A0552644A

PATIENT
  Age: 46 Year
  Sex: Female

DRUGS (2)
  1. IMITREX [Suspect]
     Indication: MIGRAINE
     Route: 048
  2. DIURETIC [Concomitant]

REACTIONS (3)
  - ARTERIOSPASM CORONARY [None]
  - CHEST DISCOMFORT [None]
  - MUSCLE TIGHTNESS [None]
